FAERS Safety Report 24436530 (Version 2)
Quarter: 2024Q4

REPORT INFORMATION
  Report Type: Report from Study
  Country: CA (occurrence: CA)
  Receive Date: 20241015
  Receipt Date: 20241018
  Transmission Date: 20250115
  Serious: No
  Sender: ABBVIE
  Company Number: CA-ABBVIE-5952490

PATIENT
  Age: 63 Year
  Sex: Female

DRUGS (1)
  1. RINVOQ [Suspect]
     Active Substance: UPADACITINIB
     Indication: Rheumatoid arthritis
     Dosage: LAST ADMIN DATE 2024
     Route: 048
     Dates: start: 20240603

REACTIONS (6)
  - Presyncope [Unknown]
  - Heart rate increased [Unknown]
  - Chest pain [Unknown]
  - Muscle strain [Unknown]
  - Dyspnoea [Unknown]
  - Cough [Unknown]

NARRATIVE: CASE EVENT DATE: 20240101
